FAERS Safety Report 15618380 (Version 1)
Quarter: 2018Q4

REPORT INFORMATION
  Report Type: Spontaneous
  Country: TR (occurrence: TR)
  Receive Date: 20181114
  Receipt Date: 20181114
  Transmission Date: 20190205
  Serious: Yes (Other)
  Sender: FDA-Public Use
  Company Number: TR-NOVOPROD-632289

PATIENT
  Sex: Female

DRUGS (2)
  1. ACTRAPID [Suspect]
     Active Substance: INSULIN HUMAN
     Indication: PRODUCT USED FOR UNKNOWN INDICATION
     Dosage: UNK
     Route: 058
  2. INSULATARD HM PENFILL [Suspect]
     Active Substance: INSULIN NOS
     Indication: PRODUCT USED FOR UNKNOWN INDICATION
     Dosage: UNK
     Route: 058

REACTIONS (2)
  - Foetal death [Unknown]
  - Exposure during pregnancy [Recovered/Resolved]
